FAERS Safety Report 25872846 (Version 1)
Quarter: 2025Q4

REPORT INFORMATION
  Report Type: Spontaneous
  Country: US (occurrence: US)
  Receive Date: 20251002
  Receipt Date: 20251002
  Transmission Date: 20260117
  Serious: No
  Sender: REVANCE THERAPEUTICS
  Company Number: US-REVANCE THERAPEUTICS INC.-US-REV-2025-000476

PATIENT

DRUGS (1)
  1. DAXIBOTULINUMTOXIN A-LANM [Suspect]
     Active Substance: DAXIBOTULINUMTOXIN A-LANM
     Indication: Skin wrinkling
     Dosage: UNK
     Route: 065
     Dates: start: 20250701

REACTIONS (7)
  - Strabismus [Unknown]
  - Asthenopia [Unknown]
  - Dizziness [Unknown]
  - Anxiety [Unknown]
  - Stress fracture [Unknown]
  - Eyelid ptosis [Unknown]
  - Headache [Unknown]

NARRATIVE: CASE EVENT DATE: 20250701
